FAERS Safety Report 25101154 (Version 1)
Quarter: 2025Q1

REPORT INFORMATION
  Report Type: Spontaneous
  Country: US (occurrence: US)
  Receive Date: 20250320
  Receipt Date: 20250320
  Transmission Date: 20250409
  Serious: No
  Sender: CIPLA
  Company Number: US-CIPLA LTD.-2024US07711

PATIENT

DRUGS (2)
  1. TESTOSTERONE [Suspect]
     Active Substance: TESTOSTERONE
     Indication: Blood testosterone abnormal
     Route: 030
     Dates: start: 20240515
  2. TESTOSTERONE [Suspect]
     Active Substance: TESTOSTERONE
     Route: 030
     Dates: start: 20240525, end: 20240610

REACTIONS (9)
  - Brain fog [Recovered/Resolved]
  - Muscular weakness [Recovered/Resolved]
  - Amnesia [Recovered/Resolved]
  - Dizziness [Recovered/Resolved]
  - Fatigue [Recovered/Resolved]
  - Listless [Recovered/Resolved]
  - Vision blurred [Recovered/Resolved]
  - Drug ineffective [Recovered/Resolved]
  - Product substitution issue [Unknown]

NARRATIVE: CASE EVENT DATE: 20240501
